FAERS Safety Report 25065733 (Version 1)
Quarter: 2025Q1

REPORT INFORMATION
  Report Type: Spontaneous
  Country: US (occurrence: US)
  Receive Date: 20250311
  Receipt Date: 20250311
  Transmission Date: 20250408
  Serious: No
  Sender: SANDOZ
  Company Number: US-LANNETT COMPANY, INC.-US-2020LAN00026

PATIENT
  Sex: Female

DRUGS (1)
  1. ASPIRIN\BUTALBITAL\CAFFEINE [Suspect]
     Active Substance: ASPIRIN\BUTALBITAL\CAFFEINE
     Indication: Migraine
     Dosage: 1 CAPSULE, Q4H AS NEEDED CONCENTRATION: 50/325/40 MG
     Route: 048
     Dates: start: 202003

REACTIONS (4)
  - Migraine [Unknown]
  - Vomiting [Unknown]
  - Drug ineffective [Unknown]
  - Product taste abnormal [Unknown]

NARRATIVE: CASE EVENT DATE: 20200101
